FAERS Safety Report 6412393-4 (Version None)
Quarter: 2009Q4

REPORT INFORMATION
  Report Type: 
  Country: None (occurrence: None)
  Receive Date: 20091020
  Receipt Date: 20091006
  Transmission Date: 20100525
  Serious: Yes (Hospitalization)
  Sender: FDA-Public Use
  Company Number: 8053263

PATIENT
  Age: 33 Year
  Sex: Male

DRUGS (7)
  1. PREDNISOLONE [Suspect]
     Dosage: 5 MG /D
  2. CYCLOSPORINE [Concomitant]
  3. MYCOPHENOLATE MOFETIL [Concomitant]
  4. LEVOFLOXACIN [Concomitant]
  5. AMOXICILLIN-CALVULANIC ACID [Concomitant]
  6. CEFOPERAZONE-SULBACTAM [Concomitant]
  7. CLINDAMYCIN [Concomitant]

REACTIONS (10)
  - ABSCESS [None]
  - BLOOD CULTURE POSITIVE [None]
  - CULTURE URINE POSITIVE [None]
  - DIABETES MELLITUS [None]
  - EPIDIDYMITIS [None]
  - GRAFT DYSFUNCTION [None]
  - HYDRONEPHROSIS [None]
  - KLEBSIELLA INFECTION [None]
  - SCROTAL ABSCESS [None]
  - SEPSIS [None]
